FAERS Safety Report 14178389 (Version 2)
Quarter: 2017Q4

REPORT INFORMATION
  Report Type: Report from Study
  Country: None (occurrence: US)
  Receive Date: 20171110
  Receipt Date: 20171122
  Transmission Date: 20180321
  Serious: Yes (Hospitalization, Other)
  Sender: FDA-Public Use
  Company Number: US-ABBVIE-17S-163-2158936-00

PATIENT
  Sex: Female

DRUGS (1)
  1. LUPRON DEPOT [Suspect]
     Active Substance: LEUPROLIDE ACETATE
     Indication: ENDOMETRIOSIS
     Route: 030
     Dates: start: 1992

REACTIONS (9)
  - Migraine [Unknown]
  - Diabetes mellitus [Unknown]
  - Thyroid cancer [Unknown]
  - Nephrolithiasis [Unknown]
  - Hypertension [Unknown]
  - Hot flush [Unknown]
  - Lymphoma [Unknown]
  - Cerebrovascular accident [Unknown]
  - Osteoporosis [Unknown]

NARRATIVE: CASE EVENT DATE: 2000
